FAERS Safety Report 8612460 (Version 2)
Quarter: 2012Q4

REPORT INFORMATION
  Report Type: Report from Study
  Country: CA (occurrence: CA)
  Receive Date: 20120613
  Receipt Date: 20121010
  Transmission Date: 20130627
  Serious: Yes (Hospitalization, Other)
  Sender: FDA-Public Use
  Company Number: CA-ABBOTT-12P-028-0943158-00

PATIENT
  Age: 44 None
  Sex: Male
  Weight: 60 kg

DRUGS (15)
  1. KALETRA TABLETS 200MG/50MG [Suspect]
     Indication: HIV INFECTION
     Dosage: 200 MG / 50 MG, daily dose: 600/150MG, 1 tab AM, 2  tabd PM
     Route: 048
  2. KALETRA TABLETS 200MG/50MG [Suspect]
     Indication: ANTIRETROVIRAL THERAPY
  3. NEXIUM [Concomitant]
     Indication: PRODUCT USED FOR UNKNOWN INDICATION
     Dosage: 2 in 1 D, 40 MG
     Route: 048
  4. APO NADOL [Concomitant]
     Indication: PRODUCT USED FOR UNKNOWN INDICATION
     Dosage: 1/2 tab, Once daily, 40 MG
  5. JAMP FERROUS SULFATE [Concomitant]
     Indication: PRODUCT USED FOR UNKNOWN INDICATION
     Dosage: 300 MG
     Route: 048
  6. PMS CALCIUM [Concomitant]
     Indication: PRODUCT USED FOR UNKNOWN INDICATION
     Dosage: Twice daily, 500 MG
     Route: 048
  7. ISENTRESS [Concomitant]
     Indication: PRODUCT USED FOR UNKNOWN INDICATION
     Dosage: Twice daily, 400 MG
     Route: 048
  8. DOMPERIDONE RATIO [Concomitant]
     Indication: PRODUCT USED FOR UNKNOWN INDICATION
     Route: 048
  9. EURO FOLIC [Concomitant]
     Indication: PRODUCT USED FOR UNKNOWN INDICATION
     Dosage: Once daily, 5 MG
     Route: 048
  10. APO FUROSEMIDE [Concomitant]
     Indication: PRODUCT USED FOR UNKNOWN INDICATION
     Dosage: Once daily, 40 MG
     Route: 048
  11. METRONIDAZOLE [Concomitant]
     Indication: PRODUCT USED FOR UNKNOWN INDICATION
     Dosage: Twice daily, 250 MG
  12. NOVOLIN GE NPH [Concomitant]
     Indication: PRODUCT USED FOR UNKNOWN INDICATION
     Dosage: 10 units 100 UI/ml 3 pens
     Route: 050
  13. PHOSPHATE NOVARTIS [Concomitant]
     Indication: PRODUCT USED FOR UNKNOWN INDICATION
     Dosage: 1936 MG effervescent, 1 tab in water
  14. NOVOGESIC [Concomitant]
     Indication: PRODUCT USED FOR UNKNOWN INDICATION
     Dosage: 325 MG caplets, 2 tabs if needed every 4-6 hrs max 4 tim
     Route: 048
  15. LOPERAMIDE TEVA [Concomitant]
     Indication: DIARRHOEA
     Dosage: 2 MG, 2 tabs plus 1 tab after diarrhea max 8 t

REACTIONS (11)
  - Hepatic cirrhosis [Unknown]
  - Abdominal pain [Recovered/Resolved]
  - Weight decreased [Unknown]
  - Diabetes mellitus [Unknown]
  - Hepatic cirrhosis [Unknown]
  - Hepatic cirrhosis [Unknown]
  - Abdominal pain [Not Recovered/Not Resolved]
  - Constipation [Recovered/Resolved]
  - Obstruction [Unknown]
  - Asthenia [Not Recovered/Not Resolved]
  - Asthenia [Not Recovered/Not Resolved]
